FAERS Safety Report 24279036 (Version 1)
Quarter: 2024Q3

REPORT INFORMATION
  Report Type: Spontaneous
  Country: FR (occurrence: FR)
  Receive Date: 20240903
  Receipt Date: 20240903
  Transmission Date: 20241017
  Serious: Yes (Life-Threatening)
  Sender: TEVA
  Company Number: None

PATIENT
  Age: 78 Year
  Sex: Male

DRUGS (5)
  1. PANTOPRAZOLE [Suspect]
     Active Substance: PANTOPRAZOLE
     Indication: Medication error
     Dosage: NOT SPECIFIED
     Route: 048
     Dates: start: 20240723, end: 20240723
  2. LERCANIDIPINE [Suspect]
     Active Substance: LERCANIDIPINE
     Indication: Medication error
     Dosage: NOT SPECIFIED
     Route: 048
     Dates: start: 20240723, end: 20240723
  3. MIANSERIN [Suspect]
     Active Substance: MIANSERIN
     Indication: Medication error
     Dosage: NOT SPECIFIED, MIANSERINE (HYDROCHLORIDE)
     Route: 048
     Dates: start: 20240723, end: 20240723
  4. EBASTINE [Suspect]
     Active Substance: EBASTINE
     Indication: Medication error
     Dosage: NOT SPECIFIED
     Route: 048
     Dates: start: 20240723, end: 20240723
  5. XARELTO [Suspect]
     Active Substance: RIVAROXABAN
     Indication: Medication error
     Dosage: NOT SPECIFIED,
     Route: 048
     Dates: start: 20240723, end: 20240723

REACTIONS (2)
  - Hypotension [Recovered/Resolved]
  - Somnolence [Recovered/Resolved]

NARRATIVE: CASE EVENT DATE: 20240723
